FAERS Safety Report 6946079-4 (Version None)
Quarter: 2010Q3

REPORT INFORMATION
  Report Type: 
  Country: None (occurrence: None)
  Receive Date: 20100827
  Receipt Date: 20100817
  Transmission Date: 20110219
  Serious: Yes (Hospitalization)
  Sender: FDA-Public Use
  Company Number: US-PFIZER INC-2010103933

PATIENT
  Sex: Male

DRUGS (1)
  1. DILANTIN-125 [Suspect]

REACTIONS (3)
  - CONVULSION [None]
  - DRUG TOXICITY [None]
  - JOINT DISLOCATION [None]
